FAERS Safety Report 5402629-0 (Version None)
Quarter: 2007Q3

REPORT INFORMATION
  Report Type: 
  Country: None (occurrence: None)
  Receive Date: 20070801
  Receipt Date: 20070328
  Transmission Date: 20080115
  Serious: No
  Sender: FDA-Public Use
  Company Number: A0643230A

PATIENT
  Age: 40 Year
  Sex: Female

DRUGS (5)
  1. IMITREX [Suspect]
     Indication: MIGRAINE
     Dosage: 100MG AS REQUIRED
     Route: 048
     Dates: start: 20070308, end: 20070308
  2. SINGULAIR [Concomitant]
  3. PROZAC [Concomitant]
  4. ANTIHYPERTENSIVE [Concomitant]
  5. XANAX [Concomitant]

REACTIONS (7)
  - DYSPEPSIA [None]
  - MALAISE [None]
  - MUSCLE TIGHTNESS [None]
  - MUSCULOSKELETAL STIFFNESS [None]
  - MYALGIA [None]
  - NAUSEA [None]
  - VOMITING [None]
